FAERS Safety Report 8923386 (Version 1)
Quarter: 2012Q4

REPORT INFORMATION
  Report Type: 
  Country: AR (occurrence: AR)
  Receive Date: 20121124
  Receipt Date: 20121124
  Transmission Date: 20130627
  Serious: Yes (Hospitalization, Other)
  Sender: FDA-Public Use
  Company Number: PHHY2012AR106913

PATIENT
  Sex: Male

DRUGS (1)
  1. DIOVAN [Suspect]
     Dosage: 160 mg, UNK

REACTIONS (1)
  - Cerebrovascular accident [Recovered/Resolved with Sequelae]
